FAERS Safety Report 8092570-X (Version None)
Quarter: 2012Q1

REPORT INFORMATION
  Report Type: 
  Country: None (occurrence: None)
  Receive Date: 20120130
  Receipt Date: 20120130
  Transmission Date: 20120608
  Serious: No
  Sender: FDA-Public Use
  Company Number: None

PATIENT
  Age: 65 Year
  Sex: Male
  Weight: 90.9 kg

DRUGS (3)
  1. WARFARIN SODIUM [Suspect]
     Indication: ATRIAL FIBRILLATION
     Dosage: 2.5 MG EVERY DAY PO
     Route: 048
     Dates: start: 20110727, end: 20111031
  2. WARFARIN SODIUM [Suspect]
     Indication: MITRAL VALVE INCOMPETENCE
     Dosage: 2.5 MG EVERY DAY PO
     Route: 048
     Dates: start: 20110727, end: 20111031
  3. MELOXICAM [Suspect]
     Indication: MUSCULOSKELETAL PAIN
     Dosage: 15 MG EVERY DAY PO
     Route: 048
     Dates: start: 20100617, end: 20111102

REACTIONS (2)
  - GASTRIC HAEMORRHAGE [None]
  - DIZZINESS [None]
